FAERS Safety Report 8938384 (Version 1)
Quarter: 2012Q4

REPORT INFORMATION
  Report Type: Spontaneous
  Country: US (occurrence: None)
  Receive Date: 20121128
  Receipt Date: 20121128
  Transmission Date: 20130627
  Serious: No
  Sender: FDA-Public Use
  Company Number: None

PATIENT

DRUGS (1)
  1. ZOFRAN [Suspect]
     Dates: start: 20121012, end: 20121012

REACTIONS (10)
  - Headache [None]
  - Photophobia [None]
  - Hyperacusis [None]
  - Nausea [None]
  - Abdominal pain upper [None]
  - Diarrhoea [None]
  - Vomiting [None]
  - Crying [None]
  - Suicidal ideation [None]
  - Depression [None]
